FAERS Safety Report 6380040-6 (Version None)
Quarter: 2009Q3

REPORT INFORMATION
  Report Type: 
  Country: None (occurrence: None)
  Receive Date: 20090928
  Receipt Date: 20090918
  Transmission Date: 20100115
  Serious: Yes (Hospitalization)
  Sender: FDA-Public Use
  Company Number: NO-ABBOTT-09P-122-0598120-00

PATIENT
  Age: 39 Year
  Sex: Female

DRUGS (2)
  1. HUMIRA [Suspect]
     Indication: COLITIS ULCERATIVE
     Route: 058
     Dates: start: 20090828, end: 20090828
  2. PENTASA [Concomitant]
     Indication: COLITIS ULCERATIVE

REACTIONS (6)
  - C-REACTIVE PROTEIN INCREASED [None]
  - INFLUENZA LIKE ILLNESS [None]
  - LEUKOCYTOSIS [None]
  - NASOPHARYNGITIS [None]
  - OROPHARYNGEAL PAIN [None]
  - PYREXIA [None]
